FAERS Safety Report 7645082-9 (Version None)
Quarter: 2011Q3

REPORT INFORMATION
  Report Type: 
  Country: None (occurrence: None)
  Receive Date: 20110729
  Receipt Date: 20110725
  Transmission Date: 20111222
  Serious: Yes (Hospitalization, Other)
  Sender: FDA-Public Use
  Company Number: PHEH2011US00516

PATIENT
  Sex: Female

DRUGS (2)
  1. ZELNORM [Suspect]
     Indication: IRRITABLE BOWEL SYNDROME
     Dosage: UNK UKN, UNK
  2. ZELNORM [Suspect]
     Dosage: UNK UKN, UNK
     Dates: start: 20060801

REACTIONS (12)
  - LOSS OF CONSCIOUSNESS [None]
  - NECK INJURY [None]
  - INJURY [None]
  - ANGINA PECTORIS [None]
  - PAIN [None]
  - SYNCOPE [None]
  - ANHEDONIA [None]
  - MYOCARDIAL INFARCTION [None]
  - JAW FRACTURE [None]
  - DEFORMITY [None]
  - ANXIETY [None]
  - CHEST PAIN [None]
